FAERS Safety Report 6431523-1 (Version None)
Quarter: 2009Q4

REPORT INFORMATION
  Report Type: 
  Country: None (occurrence: None)
  Receive Date: 20091103
  Receipt Date: 20091019
  Transmission Date: 20100525
  Serious: Yes (Hospitalization)
  Sender: FDA-Public Use
  Company Number: DSU-2009-02213

PATIENT
  Age: 54 Year
  Sex: Male

DRUGS (7)
  1. OLMESARTAN MEDOXOMIL [Suspect]
     Indication: HYPERTENSION
     Dosage: (20 MG,QD)
     Dates: start: 20050101
  2. OLMESARTAN MEDOXOMIL [Suspect]
     Indication: HYPERTENSION
     Dosage: (20 MG,QD)
     Dates: start: 20060107
  3. OLMESARTAN MEDOXOMIL AND HYDROCHLOROTHIZIDE [Suspect]
     Indication: HYPERTENSION
     Dosage: 20MG/12.5MG (QD),PER ORAL ; 20MG/12.5MG
     Route: 048
     Dates: start: 20060101
  4. ALLOPURINOL [Concomitant]
  5. ARELIX (PIRETANIDE) (PIRETANIDE) [Concomitant]
  6. CALCIUM ACETATE (CALCIUM ACETATE) (CALCIUM ACETATE) [Concomitant]
  7. DUOVENT (FENOTEROL HYDROBROMIDE, IRPATROPIUM BROMIDE) (FENOTEROL HYDRO [Concomitant]

REACTIONS (14)
  - ANAEMIA [None]
  - BLOOD PRESSURE DECREASED [None]
  - DECREASED APPETITE [None]
  - DENGUE FEVER [None]
  - HEPATOMEGALY [None]
  - INFECTION [None]
  - MALAISE [None]
  - NASAL CONGESTION [None]
  - PAIN [None]
  - PNEUMONIA [None]
  - PYREXIA [None]
  - RENAL CYST [None]
  - SPLENOMEGALY [None]
  - VOMITING [None]
